FAERS Safety Report 7832485-2 (Version None)
Quarter: 2011Q4

REPORT INFORMATION
  Report Type: 
  Country: None (occurrence: None)
  Receive Date: 20111023
  Receipt Date: 20111010
  Transmission Date: 20120403
  Serious: Yes (Other)
  Sender: FDA-Public Use
  Company Number: US-ELI_LILLY_AND_COMPANY-US201110002529

PATIENT
  Sex: Female

DRUGS (16)
  1. PREMERON [Concomitant]
  2. MICARDIS [Concomitant]
  3. ALLEGRA [Concomitant]
  4. BONTRIL [Concomitant]
     Dosage: UNK, BID
  5. MOBIC [Concomitant]
     Indication: NEURALGIA
  6. REQUIP [Concomitant]
  7. TUMS                               /00108001/ [Concomitant]
  8. FORTEO [Suspect]
     Indication: OSTEOPOROSIS
     Dosage: 20 UG, QD
     Dates: start: 20070820, end: 20080528
  9. FORTEO [Suspect]
     Dosage: 20 UG, QD
     Dates: start: 20110821
  10. HYDROCHLOROTHIAZIDE [Concomitant]
     Dosage: 25 MG, BID
  11. CITRACAL [Concomitant]
  12. CYMBALTA [Concomitant]
     Indication: NEURALGIA
  13. VITAMIN D [Concomitant]
     Dosage: 1000 IU, UNK
  14. NASACORT [Concomitant]
  15. CALCIUM CARBONATE [Concomitant]
     Dosage: UNK, BID
  16. DEXLANSOPRAZOLE [Concomitant]

REACTIONS (8)
  - PELVIC FRACTURE [None]
  - FEMUR FRACTURE [None]
  - PAIN [None]
  - DRUG DOSE OMISSION [None]
  - GASTRIC DISORDER [None]
  - FRACTURE [None]
  - ARTHRALGIA [None]
  - OSTEONECROSIS [None]
